FAERS Safety Report 23059279 (Version 6)
Quarter: 2024Q4

REPORT INFORMATION
  Report Type: Spontaneous
  Country: US (occurrence: US)
  Receive Date: 20231012
  Receipt Date: 20241015
  Transmission Date: 20250115
  Serious: Yes (Other)
  Sender: TRAVERE THERAPEUTICS
  Company Number: US-TRAVERE-2023TVT00563

PATIENT
  Age: 24 Year
  Sex: Male

DRUGS (3)
  1. FILSPARI [Suspect]
     Active Substance: SPARSENTAN
     Indication: IgA nephropathy
     Dosage: ONE TABLET ONE TIME A DAY FOR DAYS 1- 14
     Route: 048
     Dates: start: 20230610, end: 20230623
  2. FILSPARI [Suspect]
     Active Substance: SPARSENTAN
     Indication: Proteinuria
     Dosage: TWO TABLETS ONE TIME A DAY FOR DAYS 15-30
     Route: 048
  3. FILSPARI [Suspect]
     Active Substance: SPARSENTAN
     Indication: Blood immunoglobulin A
     Dosage: 200 MG
     Route: 048

REACTIONS (6)
  - Liver function test increased [Recovered/Resolved]
  - Hepatitis [Unknown]
  - Hepatic pain [Recovered/Resolved]
  - Abdominal pain upper [Unknown]
  - Renal pain [Unknown]
  - Drug ineffective [Unknown]

NARRATIVE: CASE EVENT DATE: 20230612
